FAERS Safety Report 6115127-6 (Version None)
Quarter: 2009Q1

REPORT INFORMATION
  Report Type: 
  Country: None (occurrence: None)
  Receive Date: 20090313
  Receipt Date: 20090302
  Transmission Date: 20090719
  Serious: Yes (Other)
  Sender: FDA-Public Use
  Company Number: GB-PFIZER INC-2008088308

PATIENT

DRUGS (5)
  1. CHAMPIX [Suspect]
     Indication: SMOKING CESSATION THERAPY
     Route: 048
     Dates: start: 20080828, end: 20080929
  2. ACETAMINOPHEN W/ CODEINE [Concomitant]
  3. FEXOFENADINE [Concomitant]
  4. FLUTICASONE PROPIONATE [Concomitant]
  5. THYROXINE [Concomitant]

REACTIONS (4)
  - ABDOMINAL PAIN [None]
  - POLLAKIURIA [None]
  - SUICIDAL IDEATION [None]
  - TEARFULNESS [None]
